FAERS Safety Report 8860972 (Version 1)
Quarter: 2012Q4

REPORT INFORMATION
  Report Type: Spontaneous
  Country: DK (occurrence: None)
  Receive Date: 20121023
  Receipt Date: 20121023
  Transmission Date: 20130627
  Serious: Yes (Other)
  Sender: FDA-Public Use
  Company Number: 2012MA012554

PATIENT
  Age: 69 Year
  Sex: Female

DRUGS (11)
  1. METOCLOPRAMIDE TABLETS USP, 10 MG (PUREPAC) [Suspect]
     Indication: ESOPHAGEAL REFLUX
     Route: 048
     Dates: start: 20120305, end: 201208
  2. ISPAGHULA [Concomitant]
  3. CO-CODAMOL [Concomitant]
  4. PERINDOPRIL [Concomitant]
  5. WARFARIN [Concomitant]
  6. OMEPRAZOLE [Concomitant]
  7. DOMPERIDONE [Concomitant]
  8. ATENOLOL [Concomitant]
  9. CO-AMILOPRUSE [Concomitant]
  10. SIMVASTATIN [Concomitant]
  11. RANITIDINE [Concomitant]

REACTIONS (11)
  - Drug withdrawal syndrome [None]
  - Anxiety [None]
  - Nervousness [None]
  - Agitation [None]
  - Depression [None]
  - Suicidal ideation [None]
  - Heart rate irregular [None]
  - Hyperhidrosis [None]
  - Tachycardia [None]
  - Sinus arrest [None]
  - Mental impairment [None]
